FAERS Safety Report 18379169 (Version 1)
Quarter: 2020Q4

REPORT INFORMATION
  Report Type: Spontaneous
  Country: GB (occurrence: GB)
  Receive Date: 20201014
  Receipt Date: 20201014
  Transmission Date: 20210114
  Serious: Yes (Life-Threatening, Other)
  Sender: FDA-Public Use
  Company Number: GB-ADVANZ PHARMA-202010009311

PATIENT

DRUGS (31)
  1. DOXAZOSIN [Concomitant]
     Active Substance: DOXAZOSIN MESYLATE
  2. BENDROFLUMETHIAZIDE [Concomitant]
     Active Substance: BENDROFLUMETHIAZIDE
  3. TRIMETHOPRIM. [Concomitant]
     Active Substance: TRIMETHOPRIM
  4. FLEET READY TO USE ENEMA [Concomitant]
  5. GABAPENTIN. [Concomitant]
     Active Substance: GABAPENTIN
  6. MAGNESIUM ASPARTATE [Concomitant]
     Active Substance: MAGNESIUM ASPARTATE
  7. FUROSEMIDE. [Concomitant]
     Active Substance: FUROSEMIDE
  8. BISOPROLOL FUMARATE. [Concomitant]
     Active Substance: BISOPROLOL FUMARATE
  9. ISOSORBIDE MONONITRATE. [Concomitant]
     Active Substance: ISOSORBIDE MONONITRATE
  10. INSULIN [Concomitant]
     Active Substance: INSULIN NOS
  11. CEFUROXIME. [Concomitant]
     Active Substance: CEFUROXIME
  12. ATORVASTATIN CALCIUM. [Concomitant]
     Active Substance: ATORVASTATIN CALCIUM
  13. MONOFER [Suspect]
     Active Substance: IRON ISOMALTOSIDE 1000
     Indication: IRON DEFICIENCY ANAEMIA
     Dosage: 600 MG
     Route: 042
     Dates: start: 20200820, end: 20200820
  14. GENERICS UK OMEPRAZOLE [Concomitant]
  15. OXYCODONE HYDROCHLORIDE. [Concomitant]
     Active Substance: OXYCODONE HYDROCHLORIDE
  16. TAZOCIN [Concomitant]
     Active Substance: PIPERACILLIN SODIUM\TAZOBACTAM SODIUM
  17. CO-AMOXICLAV [Concomitant]
     Active Substance: AMOXICILLIN\CLAVULANATE POTASSIUM
  18. ZOPICLONE [Concomitant]
     Active Substance: ZOPICLONE
  19. TRAZODONE [Concomitant]
     Active Substance: TRAZODONE HYDROCHLORIDE
  20. PANTOPRAZOLE SODIUM. [Concomitant]
     Active Substance: PANTOPRAZOLE SODIUM
  21. CODEINE [Concomitant]
     Active Substance: CODEINE
  22. FERROUS FUMARATE [Concomitant]
     Active Substance: FERROUS FUMARATE
  23. CALCIUM GLUCONATE. [Concomitant]
     Active Substance: CALCIUM GLUCONATE
  24. ENOXAPARIN SODIUM. [Concomitant]
     Active Substance: ENOXAPARIN SODIUM
  25. DIGOXIN. [Suspect]
     Active Substance: DIGOXIN
     Dosage: 250 UG
  26. DULOXETINE. [Concomitant]
     Active Substance: DULOXETINE
  27. CLARITHROMYCIN CITRATE [Concomitant]
     Active Substance: CLARITHROMYCIN CITRATE
  28. LACTULOSE, LIQUID [Concomitant]
     Active Substance: LACTULOSE
  29. HYDRALAZINE [Concomitant]
     Active Substance: HYDRALAZINE HYDROCHLORIDE
  30. CASSIA [Concomitant]
  31. MEROPENEM. [Concomitant]
     Active Substance: MEROPENEM

REACTIONS (5)
  - Respiratory arrest [Unknown]
  - Cardiac arrest [Recovered/Resolved]
  - Cardiac output decreased [Unknown]
  - Sinus bradycardia [Unknown]
  - Blood pressure decreased [Unknown]

NARRATIVE: CASE EVENT DATE: 20200820
